FAERS Safety Report 8212360-4 (Version None)
Quarter: 2012Q1

REPORT INFORMATION
  Report Type: 
  Country: None (occurrence: None)
  Receive Date: 20120315
  Receipt Date: 20120307
  Transmission Date: 20120608
  Serious: Yes (Life-Threatening, Other)
  Sender: FDA-Public Use
  Company Number: US-JNJFOC-20100101847

PATIENT
  Sex: Male

DRUGS (17)
  1. LEUPROLIDE ACETATE [Concomitant]
     Indication: CHEMOTHERAPY
     Route: 030
     Dates: start: 20090831
  2. ABIRATERONE ACETATE [Suspect]
     Route: 048
  3. ABIRATERONE ACETATE [Suspect]
     Indication: PROSTATE CANCER METASTATIC
     Route: 048
     Dates: start: 20090831, end: 20091027
  4. VITAMIN D [Concomitant]
     Indication: SUPPLEMENTATION THERAPY
     Route: 048
     Dates: start: 20090505
  5. IBANDRONATE SODIUM [Concomitant]
     Indication: METASTASES TO BONE
     Route: 048
     Dates: start: 20090721
  6. AMLODIPINE BESYLATE AND VALSARTAN [Concomitant]
     Indication: HYPERTENSION
     Route: 048
     Dates: start: 20090406
  7. SOY ISOFLAVONES [Concomitant]
     Indication: SUPPLEMENTATION THERAPY
     Route: 048
     Dates: start: 20090505
  8. VYTORIN [Concomitant]
     Indication: HYPERCHOLESTEROLAEMIA
     Route: 048
     Dates: start: 20090406
  9. OCUVITE LUTEIN [Concomitant]
     Indication: VITAMIN SUPPLEMENTATION
     Route: 065
     Dates: start: 20070101
  10. CALCIUM [Concomitant]
     Indication: MEDICAL DIET
     Route: 048
     Dates: start: 20090505
  11. LIPITAC [Concomitant]
     Indication: SUPPLEMENTATION THERAPY
     Route: 048
     Dates: start: 20090406
  12. VIGRAN [Concomitant]
     Indication: SUPPLEMENTATION THERAPY
     Route: 048
     Dates: start: 19781001
  13. PREDNISONE TAB [Suspect]
     Indication: PROSTATE CANCER METASTATIC
     Route: 048
     Dates: start: 20090831
  14. GABAPENTIN [Concomitant]
     Indication: HOT FLUSH
     Route: 065
     Dates: start: 20090812
  15. DOCETAXEL [Concomitant]
     Indication: PROSTATE CANCER
     Route: 042
     Dates: start: 20091106
  16. HYDROXYZINE HYDROCHLORIDE [Concomitant]
     Indication: SEASONAL ALLERGY
     Route: 048
     Dates: start: 19781001
  17. AMBIEN [Concomitant]
     Indication: INSOMNIA
     Route: 048
     Dates: start: 20090901

REACTIONS (1)
  - LIPASE INCREASED [None]
